FAERS Safety Report 17982340 (Version 1)
Quarter: 2020Q3

REPORT INFORMATION
  Report Type: Spontaneous
  Country: ES (occurrence: ES)
  Receive Date: 20200706
  Receipt Date: 20200706
  Transmission Date: 20201103
  Serious: Yes (Other)
  Sender: FDA-Public Use
  Company Number: ES-JNJFOC-20200702242

PATIENT
  Age: 32 Year
  Sex: Female

DRUGS (3)
  1. IBUPROFEN. [Suspect]
     Active Substance: IBUPROFEN
     Indication: DRUG PROVOCATION TEST
     Route: 065
  2. ACETYLSALICYLIC ACID [Concomitant]
     Active Substance: ASPIRIN
     Indication: DRUG PROVOCATION TEST
     Route: 065
  3. NAPROXEN. [Suspect]
     Active Substance: NAPROXEN
     Indication: DRUG PROVOCATION TEST
     Route: 065

REACTIONS (3)
  - Product use in unapproved indication [Unknown]
  - Angioedema [Unknown]
  - Off label use [Unknown]
